FAERS Safety Report 8769737 (Version 3)
Quarter: 2012Q4

REPORT INFORMATION
  Report Type: 
  Country: US (occurrence: US)
  Receive Date: 20120905
  Receipt Date: 20121102
  Transmission Date: 20130627
  Serious: Yes (Hospitalization)
  Sender: FDA-Public Use
  Company Number: US-JNJFOC-20120813411

PATIENT
  Sex: Female
  Weight: 54.43 kg

DRUGS (11)
  1. MS PEPCID AC [Suspect]
     Indication: GASTROOESOPHAGEAL REFLUX DISEASE
     Dosage: 1 tablet, 2 times daily
     Route: 048
     Dates: start: 20120817
  2. MS PEPCID AC [Suspect]
     Indication: GASTROOESOPHAGEAL REFLUX DISEASE
     Route: 048
     Dates: start: 20120920
  3. DOMPERIDONE [Suspect]
     Indication: OESOPHAGEAL DISORDER
     Route: 065
     Dates: start: 200802, end: 20120803
  4. DOMPERIDONE [Suspect]
     Indication: GASTROOESOPHAGEAL REFLUX DISEASE
     Route: 065
     Dates: start: 200802, end: 20120803
  5. COUMADIN [Concomitant]
     Indication: CEREBROVASCULAR ACCIDENT
     Route: 065
     Dates: start: 199811
  6. LANSOPRAZOLE [Concomitant]
     Indication: GASTROOESOPHAGEAL REFLUX DISEASE
     Route: 065
  7. RANITIDINE [Concomitant]
     Indication: GASTROOESOPHAGEAL REFLUX DISEASE
     Route: 065
  8. ANTACID TABLETS [Concomitant]
     Indication: ABDOMINAL DISTENSION
     Route: 065
  9. ANTACID [Concomitant]
     Indication: GASTROOESOPHAGEAL REFLUX DISEASE
     Route: 065
  10. BIOTIN [Concomitant]
     Route: 065
     Dates: start: 2010
  11. VITAMIN [Concomitant]
     Indication: ONYCHOCLASIS
     Route: 065
     Dates: start: 199811

REACTIONS (3)
  - Dyspnoea [Not Recovered/Not Resolved]
  - Pain in extremity [Unknown]
  - Faeces pale [Recovered/Resolved]
